FAERS Safety Report 15397978 (Version 1)
Quarter: 2018Q3

REPORT INFORMATION
  Report Type: Spontaneous
  Country: GR (occurrence: GR)
  Receive Date: 20180918
  Receipt Date: 20180918
  Transmission Date: 20181010
  Serious: Yes (Other)
  Sender: FDA-Public Use
  Company Number: GR-MYLANLABS-2018M1068011

PATIENT
  Age: 65 Year
  Sex: Female

DRUGS (1)
  1. PANTOPRAZOLE MYLAN [Suspect]
     Active Substance: PANTOPRAZOLE SODIUM
     Indication: PRODUCT USED FOR UNKNOWN INDICATION
     Dosage: 40 MG, QD (DAILY FOR 20 YEARS)

REACTIONS (3)
  - Hypocalcaemia [Unknown]
  - Hypomagnesaemia [Unknown]
  - Hypokalaemia [Unknown]
